FAERS Safety Report 5013065-3 (Version None)
Quarter: 2006Q2

REPORT INFORMATION
  Report Type: 
  Country: None (occurrence: None)
  Receive Date: 20060530
  Receipt Date: 20060213
  Transmission Date: 20061013
  Serious: No
  Sender: FDA-Public Use
  Company Number: US-GLAXOSMITHKLINE-A0593489A

PATIENT
  Age: 55 Year
  Sex: Female

DRUGS (2)
  1. WELLBUTRIN XL [Suspect]
     Indication: DRUG USE FOR UNKNOWN INDICATION
     Dosage: 150MG PER DAY
     Route: 048
     Dates: start: 20060110, end: 20060125
  2. ESTRACE [Concomitant]

REACTIONS (3)
  - BLOOD PRESSURE INCREASED [None]
  - INSOMNIA [None]
  - PALPITATIONS [None]
